FAERS Safety Report 24311230 (Version 1)
Quarter: 2024Q3

REPORT INFORMATION
  Report Type: Spontaneous
  Country: US (occurrence: US)
  Receive Date: 20240912
  Receipt Date: 20240912
  Transmission Date: 20241017
  Serious: No
  Sender: ALVOGEN
  Company Number: None

PATIENT

DRUGS (1)
  1. LISDEXAMFETAMINE DIMESYLATE [Suspect]
     Active Substance: LISDEXAMFETAMINE DIMESYLATE
     Indication: Product used for unknown indication
     Dosage: STRENGTH:60 MG

REACTIONS (6)
  - Loss of personal independence in daily activities [Unknown]
  - Feeling abnormal [Unknown]
  - Dyspepsia [Unknown]
  - Migraine [Unknown]
  - Product substitution issue [Unknown]
  - Therapeutic response decreased [Unknown]
